FAERS Safety Report 17446328 (Version 1)
Quarter: 2020Q1

REPORT INFORMATION
  Report Type: Spontaneous
  Country: US (occurrence: US)
  Receive Date: 20200221
  Receipt Date: 20200221
  Transmission Date: 20200409
  Serious: Yes (Other)
  Sender: FDA-Public Use
  Company Number: US-ROCHE-2553064

PATIENT
  Sex: Male
  Weight: 103.06 kg

DRUGS (19)
  1. NEURONTIN [Concomitant]
     Active Substance: GABAPENTIN
  2. KLONOPIN [Suspect]
     Active Substance: CLONAZEPAM
     Indication: DEPRESSION
     Route: 048
     Dates: start: 2011
  3. SENNA [Concomitant]
     Active Substance: SENNA LEAF\SENNOSIDES\SENNOSIDES A AND B
  4. CALCIUM [Concomitant]
     Active Substance: CALCIUM
  5. AMANTADINE. [Concomitant]
     Active Substance: AMANTADINE HYDROCHLORIDE
  6. MECLIZINE [Concomitant]
     Active Substance: MECLIZINE HYDROCHLORIDE
  7. PRILOSEC [Concomitant]
     Active Substance: OMEPRAZOLE MAGNESIUM
  8. FISH OIL [Concomitant]
     Active Substance: FISH OIL
  9. MINIPRES [Concomitant]
     Active Substance: PRAZOSIN HYDROCHLORIDE
  10. TEGRETOL [Concomitant]
     Active Substance: CARBAMAZEPINE
  11. COPAXONE [Concomitant]
     Active Substance: GLATIRAMER ACETATE
     Indication: MULTIPLE SCLEROSIS
  12. DOCUSATE SODIUM. [Concomitant]
     Active Substance: DOCUSATE SODIUM
  13. LOPID [Concomitant]
     Active Substance: GEMFIBROZIL
  14. AVONEX [Concomitant]
     Active Substance: INTERFERON BETA-1A
  15. DILAUDID [Concomitant]
     Active Substance: HYDROMORPHONE HYDROCHLORIDE
     Indication: TRIGEMINAL NEURALGIA
  16. COPAXONE [Concomitant]
     Active Substance: GLATIRAMER ACETATE
  17. TOPAMAX [Concomitant]
     Active Substance: TOPIRAMATE
  18. LYRICA [Concomitant]
     Active Substance: PREGABALIN
  19. MODAFINIL. [Concomitant]
     Active Substance: MODAFINIL

REACTIONS (6)
  - Hypoacusis [Not Recovered/Not Resolved]
  - Off label use [Unknown]
  - Attention deficit/hyperactivity disorder [Not Recovered/Not Resolved]
  - Blood cholesterol increased [Recovering/Resolving]
  - Relapsing multiple sclerosis [Recovered/Resolved]
  - Intentional product use issue [Unknown]
